FAERS Safety Report 19361582 (Version 1)
Quarter: 2021Q2

REPORT INFORMATION
  Report Type: Report from Study
  Country: None (occurrence: US)
  Receive Date: 20210602
  Receipt Date: 20210602
  Transmission Date: 20210717
  Serious: No
  Sender: FDA-Public Use
  Company Number: US-MDD US OPERATIONS-USW202004-000886

PATIENT
  Age: 70 Year
  Sex: Male
  Weight: 74.84 kg

DRUGS (6)
  1. AZILECT [Concomitant]
     Active Substance: RASAGILINE MESYLATE
     Route: 048
  2. ADVIL [Concomitant]
     Active Substance: IBUPROFEN
     Route: 048
  3. APOKYN [Suspect]
     Active Substance: APOMORPHINE HYDROCHLORIDE
     Indication: PARKINSON^S DISEASE
     Dosage: 30 MG/10 ML
     Route: 058
     Dates: start: 20200109
  4. APOKYN [Suspect]
     Active Substance: APOMORPHINE HYDROCHLORIDE
     Dosage: 3ML CARTRIDGE 1 EA CART AND EXPIRY DATE: UNKNOWN) UP TO 0.3 ML PER DOSE DO NOT EXCEED FIVE DOSES PER
     Route: 058
  5. MIRAPEX [Concomitant]
     Active Substance: PRAMIPEXOLE DIHYDROCHLORIDE
  6. CARBIDOPA/LEVODOPA 25/100 [Concomitant]
     Active Substance: CARBIDOPA\LEVODOPA
     Dosage: 25/100

REACTIONS (1)
  - Nausea [Recovered/Resolved]

NARRATIVE: CASE EVENT DATE: 202004
